FAERS Safety Report 15616744 (Version 2)
Quarter: 2018Q4

REPORT INFORMATION
  Report Type: Spontaneous
  Country: PL (occurrence: PL)
  Receive Date: 20181114
  Receipt Date: 20181114
  Transmission Date: 20190205
  Serious: Yes (Life-Threatening, Hospitalization)
  Sender: FDA-Public Use
  Company Number: PL-PFIZER INC-2018465076

PATIENT
  Age: 35 Year
  Sex: Male

DRUGS (17)
  1. CEFOPERAZONE SODIUM/SULBACTAM SODIUM [Suspect]
     Active Substance: CEFOPERAZONE SODIUM\SULBACTAM SODIUM
     Indication: PROPHYLAXIS
     Dosage: UNK UNK, UNKNOWN FREQ.
     Route: 065
  2. FLUCONAZOLE. [Suspect]
     Active Substance: FLUCONAZOLE
     Indication: PROPHYLAXIS
     Dosage: UNK UNK, UNKNOWN FREQ.
     Route: 065
  3. MEROPENEM. [Suspect]
     Active Substance: MEROPENEM
     Indication: PATHOGEN RESISTANCE
     Dosage: UNK UNK, UNKNOWN FREQ.
     Route: 065
  4. ALBUMIN [Suspect]
     Active Substance: ALBUMIN HUMAN
     Dosage: UNK UNK, UNKNOWN FREQ.
     Route: 065
  5. ASPIRIN. [Suspect]
     Active Substance: ASPIRIN
     Indication: DIARRHOEA HAEMORRHAGIC
  6. PROBIOTIC [Suspect]
     Active Substance: PROBIOTICS NOS
     Dosage: UNK UNK, UNKNOWN FREQ. (LARGE DOSES)
     Route: 065
  7. METHYLPREDNISOLONE. [Suspect]
     Active Substance: METHYLPREDNISOLONE
     Dosage: UNK UNK, UNKNOWN FREQ. (PULSES)
     Route: 065
  8. MYCOPHENOLATE MOFETIL. [Suspect]
     Active Substance: MYCOPHENOLATE MOFETIL
     Indication: IMMUNOSUPPRESSANT DRUG THERAPY
     Dosage: UNK UNK, UNKNOWN FREQ.
     Route: 065
  9. LINEZOLID. [Suspect]
     Active Substance: LINEZOLID
     Dosage: UNK UNK, UNKNOWN FREQ.
     Route: 065
  10. VANCOMYCIN [Suspect]
     Active Substance: VANCOMYCIN
     Dosage: UNK UNK, UNKNOWN FREQ. (MAXIMAL DOSE)
     Route: 048
  11. METRONIDAZOLE. [Suspect]
     Active Substance: METRONIDAZOLE
     Dosage: UNK UNK, UNKNOWN FREQ.
     Route: 065
  12. TACROLIMUS. [Suspect]
     Active Substance: TACROLIMUS
     Indication: IMMUNOSUPPRESSANT DRUG THERAPY
     Dosage: UNK UNK, UNKNOWN FREQ.
     Route: 065
  13. CILASTATIN/IMIPENEM [Suspect]
     Active Substance: CILASTATIN SODIUM\IMIPENEM
     Dosage: UNK UNK, UNKNOWN FREQ.
     Route: 065
  14. PIPERACILLIN/TAZOBACTAM [Suspect]
     Active Substance: PIPERACILLIN SODIUM\TAZOBACTAM SODIUM
     Indication: PROPHYLAXIS
     Dosage: UNK UNK, UNKNOWN FREQ.
     Route: 065
  15. MICAFUNGIN. [Suspect]
     Active Substance: MICAFUNGIN SODIUM
     Indication: ANTIFUNGAL PROPHYLAXIS
     Dosage: 100 MG, ONCE (1X100MG)
     Route: 042
  16. RIFAXIMIN. [Suspect]
     Active Substance: RIFAXIMIN
     Dosage: UNK UNK, UNKNOWN FREQ.
     Route: 065
  17. ASPIRIN. [Suspect]
     Active Substance: ASPIRIN
     Indication: HYPOALBUMINAEMIA
     Dosage: UNK UNK, UNKNOWN FREQ. (FULL THERAPEUTIC DOSE)
     Route: 065

REACTIONS (15)
  - Klebsiella infection [Unknown]
  - Clostridium test positive [Unknown]
  - Off label use [Unknown]
  - Megacolon [Unknown]
  - Infection [Unknown]
  - Dyspnoea [Unknown]
  - Haematochezia [Unknown]
  - Wound dehiscence [Unknown]
  - Enterococcus test positive [Unknown]
  - Haemorrhage [Unknown]
  - Pseudomembranous colitis [Unknown]
  - Pathogen resistance [Unknown]
  - Product use in unapproved indication [Unknown]
  - Diarrhoea [Unknown]
  - Hypoalbuminaemia [Unknown]
